FAERS Safety Report 8401034-2 (Version None)
Quarter: 2012Q2

REPORT INFORMATION
  Report Type: 
  Country: None (occurrence: None)
  Receive Date: 20120525
  Receipt Date: 20120518
  Transmission Date: 20120825
  Serious: Yes (Hospitalization)
  Sender: FDA-Public Use
  Company Number: US-008451

PATIENT
  Age: 83 Year
  Sex: Male
  Weight: 93.441 kg

DRUGS (9)
  1. AMIODARONE HCL [Concomitant]
  2. NORCO [Concomitant]
  3. SENNA /00142201/ [Concomitant]
  4. VITAMIN D [Concomitant]
  5. DEGARELIX 240 MG [Suspect]
     Indication: PROSTATE CANCER
     Dosage: (240 MG 1X SUBCUTANEOUS)
     Route: 058
     Dates: start: 20120514, end: 20120514
  6. MIRALAX [Concomitant]
  7. LASIX [Concomitant]
  8. PRAVASTATIN [Concomitant]
  9. ASPIRIN [Concomitant]

REACTIONS (6)
  - INJECTION SITE INDURATION [None]
  - INJECTION SITE ERYTHEMA [None]
  - INJECTION SITE PAIN [None]
  - URTICARIA [None]
  - BLOOD CREATININE INCREASED [None]
  - ERYTHEMA [None]
